FAERS Safety Report 14144295 (Version 2)
Quarter: 2017Q4

REPORT INFORMATION
  Report Type: Spontaneous
  Country: US (occurrence: US)
  Receive Date: 20171031
  Receipt Date: 20171201
  Transmission Date: 20180321
  Serious: Yes (Hospitalization, Other)
  Sender: FDA-Public Use
  Company Number: US-PFIZER INC-2017461984

PATIENT
  Age: 45 Year
  Sex: Female

DRUGS (3)
  1. EMBEDA [Suspect]
     Active Substance: MORPHINE SULFATE\NALTREXONE HYDROCHLORIDE
     Indication: PAIN
     Dosage: 1 DF [MORPHINE SULFATE 30MG/NALTREXONE HYDROCHLORIDE 1.2 MG], 2X/DAY
     Route: 048
     Dates: start: 20170926, end: 20171010
  2. PERCOCET [Concomitant]
     Active Substance: ACETAMINOPHEN\OXYCODONE HYDROCHLORIDE
     Indication: PAIN
     Dosage: 1 DF [OXYCODONE 10 MG/PARACETAMOL 325 MG] 3X/DAY MONTHLY
     Dates: start: 20080908
  3. TIZANIDINE. [Concomitant]
     Active Substance: TIZANIDINE
     Indication: MUSCLE RELAXANT THERAPY
     Dosage: 4 MG, 4X/DAY MONTHLY
     Dates: start: 20141202

REACTIONS (3)
  - Mental disorder [Unknown]
  - Hallucinations, mixed [Recovered/Resolved]
  - Condition aggravated [Unknown]

NARRATIVE: CASE EVENT DATE: 2017
